FAERS Safety Report 6464277-3 (Version None)
Quarter: 2009Q4

REPORT INFORMATION
  Report Type: 
  Country: None (occurrence: None)
  Receive Date: 20091201
  Receipt Date: 20091120
  Transmission Date: 20100525
  Serious: Yes (Hospitalization)
  Sender: FDA-Public Use
  Company Number: BE-ELI_LILLY_AND_COMPANY-BE200910005510

PATIENT
  Sex: Female
  Weight: 81.2 kg

DRUGS (6)
  1. GEMCITABINE HCL [Suspect]
     Indication: BREAST CANCER METASTATIC
     Dosage: 1000 MG/M2, ON D1 + D8 EVERY 3 WEEKS
     Route: 042
     Dates: start: 20091007
  2. VINFLUNINE [Suspect]
     Indication: BREAST CANCER METASTATIC
     Dosage: 320 MG/M2, ON D1 EVERY 3 WEEKS
     Route: 042
     Dates: start: 20091007
  3. LIPANTHYL [Concomitant]
     Dosage: UNK, UNK
     Dates: start: 20040625
  4. DAFALGAN CODEINE [Concomitant]
     Dates: start: 20070914
  5. STILNOCT [Concomitant]
     Dates: start: 20051216
  6. NEXIUM [Concomitant]
     Dates: start: 20051216

REACTIONS (2)
  - HYPERCALCAEMIA [None]
  - TACHYCARDIA [None]
